FAERS Safety Report 17294395 (Version 1)
Quarter: 2020Q1

REPORT INFORMATION
  Report Type: Spontaneous
  Country: US (occurrence: US)
  Receive Date: 20200121
  Receipt Date: 20200121
  Transmission Date: 20200409
  Serious: No
  Sender: FDA-Public Use
  Company Number: US-HTU-2019US019972

PATIENT
  Sex: Male

DRUGS (2)
  1. TARGRETIN [Suspect]
     Active Substance: BEXAROTENE
  2. VALCHLOR [Suspect]
     Active Substance: MECHLORETHAMINE
     Indication: CUTANEOUS T-CELL LYMPHOMA
     Dosage: UNK, BID
     Route: 061

REACTIONS (3)
  - Off label use [Unknown]
  - Anxiety [Recovering/Resolving]
  - Depression [Recovering/Resolving]
